FAERS Safety Report 25714980 (Version 2)
Quarter: 2025Q4

REPORT INFORMATION
  Report Type: Spontaneous
  Country: CA (occurrence: CA)
  Receive Date: 20250822
  Receipt Date: 20251016
  Transmission Date: 20260117
  Serious: Yes (Hospitalization)
  Sender: PFIZER
  Company Number: CA-PFIZER INC-202500166344

PATIENT
  Age: 19 Year
  Sex: Male

DRUGS (6)
  1. ABRILADA [Suspect]
     Active Substance: ADALIMUMAB-AFZB
     Indication: Crohn^s disease
     Dosage: 40MG, EVERY 2 WEEKS(WEEK 0=160MGWEEK 2=80MG 40MG Q2WEEKS)
     Route: 058
     Dates: start: 20250611
  2. ABRILADA [Suspect]
     Active Substance: ADALIMUMAB-AFZB
     Dosage: 40MG, EVERY 2 WEEKS(WEEK 0=160MGWEEK 2=80MG 40MG Q2WEEKS)
     Route: 058
     Dates: start: 2025
  3. AMOXICILLIN\CLAVULANIC ACID [Concomitant]
     Active Substance: AMOXICILLIN\CLAVULANIC ACID
     Dosage: 1 DF
  4. BUDESONIDE [Concomitant]
     Active Substance: BUDESONIDE
     Dosage: 1 DF
     Dates: start: 202505
  5. PANTOPRAZOLE [Concomitant]
     Active Substance: PANTOPRAZOLE
     Dosage: 1 DF
     Dates: start: 202505
  6. PREDNISONE [Concomitant]
     Active Substance: PREDNISONE
     Dosage: UNK

REACTIONS (2)
  - Intestinal obstruction [Not Recovered/Not Resolved]
  - Skin striae [Unknown]

NARRATIVE: CASE EVENT DATE: 20250101
